FAERS Safety Report 9337574 (Version 1)
Quarter: 2013Q2

REPORT INFORMATION
  Report Type: Spontaneous
  Country: US (occurrence: US)
  Receive Date: 20130607
  Receipt Date: 20130607
  Transmission Date: 20140414
  Serious: No
  Sender: FDA-Public Use
  Company Number: US-BAYER-2013-068804

PATIENT
  Age: 55 Year
  Sex: Female

DRUGS (1)
  1. GADAVIST [Suspect]
     Dosage: 8 ML, ONCE
     Dates: start: 20130603, end: 20130603

REACTIONS (1)
  - Vomiting [None]
